FAERS Safety Report 23674898 (Version 1)
Quarter: 2024Q1

REPORT INFORMATION
  Report Type: Spontaneous
  Country: JP (occurrence: JP)
  Receive Date: 20240326
  Receipt Date: 20240326
  Transmission Date: 20240410
  Serious: Yes (Hospitalization, Other)
  Sender: FDA-Public Use
  Company Number: JP-PURDUE-USA-2024-0308558

PATIENT
  Age: 47 Year
  Sex: Female

DRUGS (1)
  1. DEXTROAMPHET SACCHARAT, AMPHET ASPARTATE, DEXTROAMPHET SULFATE AND AMP [Suspect]
     Active Substance: AMPHETAMINE ASPARTATE\AMPHETAMINE ASPARTATE MONOHYDRATE\AMPHETAMINE SULFATE\DEXTROAMPHETAMINE SACCHA
     Indication: Product used for unknown indication
     Dosage: UNK
     Route: 065

REACTIONS (22)
  - Cytotoxic lesions of corpus callosum [Recovered/Resolved]
  - Encephalopathy [Unknown]
  - Encephalitis [Unknown]
  - Syncope [Unknown]
  - Overdose [Unknown]
  - Renal failure [Unknown]
  - Blood pressure systolic decreased [Recovered/Resolved]
  - Confusional state [Unknown]
  - Dehydration [Unknown]
  - Hyperacusis [Unknown]
  - Insomnia [Unknown]
  - Hypotension [Unknown]
  - Muscle twitching [Unknown]
  - Restlessness [Unknown]
  - Myoclonus [Unknown]
  - Psychogenic seizure [Unknown]
  - Eye movement disorder [Recovered/Resolved]
  - Urinary tract infection [Unknown]
  - Pyelonephritis [Unknown]
  - Substance use disorder [Unknown]
  - Pyrexia [Unknown]
  - Altered state of consciousness [Unknown]
